FAERS Safety Report 21409168 (Version 1)
Quarter: 2022Q4

REPORT INFORMATION
  Report Type: Report from Study
  Country: US (occurrence: US)
  Receive Date: 20221004
  Receipt Date: 20221004
  Transmission Date: 20230113
  Serious: Yes (Other)
  Sender: FDA-Public Use
  Company Number: US-UCBSA-2022027272

PATIENT
  Age: 21 Year
  Sex: Female

DRUGS (1)
  1. CERTOLIZUMAB PEGOL [Suspect]
     Active Substance: CERTOLIZUMAB PEGOL
     Indication: Psoriasis
     Dosage: 200 MILLIGRAM, EV 2 WEEKS(QOW)
     Route: 058
     Dates: start: 20220422

REACTIONS (9)
  - Psoriasis [Unknown]
  - Injection site pain [Recovering/Resolving]
  - Injection site discolouration [Recovered/Resolved]
  - Dizziness [Recovered/Resolved]
  - Erythema [Recovering/Resolving]
  - Injection site swelling [Recovering/Resolving]
  - Irritability [Recovering/Resolving]
  - Product dispensing issue [Unknown]
  - Therapy interrupted [Unknown]

NARRATIVE: CASE EVENT DATE: 20220506
